FAERS Safety Report 21298782 (Version 1)
Quarter: 2022Q3

REPORT INFORMATION
  Report Type: Spontaneous
  Country: US (occurrence: US)
  Receive Date: 20220906
  Receipt Date: 20220906
  Transmission Date: 20221027
  Serious: Yes (Hospitalization)
  Sender: FDA-Public Use
  Company Number: US-BAYER-2022A121738

PATIENT

DRUGS (1)
  1. A AND D FIRST AID [Suspect]
     Active Substance: LANOLIN\PETROLATUM

REACTIONS (1)
  - Application site burn [Unknown]
